FAERS Safety Report 17116071 (Version 1)
Quarter: 2019Q4

REPORT INFORMATION
  Report Type: Spontaneous
  Country: US (occurrence: US)
  Receive Date: 20191112
  Receipt Date: 20191112
  Transmission Date: 20200122
  Serious: No
  Sender: FDA-Public Use
  Company Number: None

PATIENT
  Age: 55 Year
  Sex: Male
  Weight: 100 kg

DRUGS (1)
  1. DOFETILIDE. [Suspect]
     Active Substance: DOFETILIDE
     Indication: ATRIAL FIBRILLATION
     Route: 048
     Dates: start: 20190605, end: 20190606

REACTIONS (5)
  - Cough [None]
  - Electrocardiogram QT prolonged [None]
  - Oedema peripheral [None]
  - Dyspnoea exertional [None]
  - Palpitations [None]

NARRATIVE: CASE EVENT DATE: 20190606
